FAERS Safety Report 11098990 (Version 1)
Quarter: 2015Q2

REPORT INFORMATION
  Report Type: Spontaneous
  Country: NO (occurrence: NO)
  Receive Date: 20150508
  Receipt Date: 20150508
  Transmission Date: 20150821
  Serious: Yes (Hospitalization, Disabling)
  Sender: FDA-Public Use
  Company Number: NO-009507513-1505NOR000841

PATIENT
  Age: 26 Year
  Sex: Female

DRUGS (3)
  1. MERCILON 28 [Suspect]
     Active Substance: DESOGESTREL\ETHINYL ESTRADIOL
     Dosage: UNK
     Dates: start: 20080331, end: 20090831
  2. TRIONETTA [Suspect]
     Active Substance: ETHINYL ESTRADIOL\LEVONORGESTREL
     Dosage: UNK
     Dates: start: 20051116
  3. SYNFASE [Suspect]
     Active Substance: ETHINYL ESTRADIOL\NORETHINDRONE
     Dosage: UNK
     Dates: start: 20061013

REACTIONS (2)
  - Intracranial venous sinus thrombosis [Not Recovered/Not Resolved]
  - Haemorrhagic cerebral infarction [Unknown]

NARRATIVE: CASE EVENT DATE: 20090830
